FAERS Safety Report 7064886-7 (Version None)
Quarter: 2010Q4

REPORT INFORMATION
  Report Type: 
  Country: None (occurrence: None)
  Receive Date: 20101027
  Receipt Date: 19900731
  Transmission Date: 20110411
  Serious: Yes (Death, Life-Threatening)
  Sender: FDA-Public Use
  Company Number: US-ROCHE-900200879001

PATIENT
  Age: 50 Year
  Sex: Female

DRUGS (11)
  1. VERSED [Suspect]
     Indication: SEDATION
     Route: 042
     Dates: start: 19900609, end: 19900709
  2. ZANTAC [Concomitant]
     Route: 065
  3. LOMOTIL [Concomitant]
     Route: 065
  4. ATIVAN [Concomitant]
     Route: 065
  5. REGLAN [Concomitant]
     Route: 065
  6. THEOPHYLLINE [Concomitant]
     Route: 065
  7. IMIPENEM [Concomitant]
     Route: 065
  8. HEPARIN [Concomitant]
     Route: 065
  9. FOLATE SODIUM [Concomitant]
     Route: 065
  10. FERRUM [Concomitant]
     Route: 065
  11. PROCAINAMIDE [Concomitant]
     Route: 065

REACTIONS (2)
  - ARRHYTHMIA [None]
  - WITHDRAWAL SYNDROME [None]
